FAERS Safety Report 5006333-2 (Version None)
Quarter: 2006Q2

REPORT INFORMATION
  Report Type: 
  Country: None (occurrence: None)
  Receive Date: 20060519
  Receipt Date: 20060509
  Transmission Date: 20061013
  Serious: Yes (Hospitalization)
  Sender: FDA-Public Use
  Company Number: PHRM2006FR01543

PATIENT
  Age: 56 Year
  Sex: Male

DRUGS (5)
  1. HYDROCORTANCYL [Suspect]
     Indication: PSORIATIC ARTHROPATHY
     Dosage: 5 MG, UNK
     Route: 048
     Dates: start: 20060117, end: 20060215
  2. VOLTAREN [Suspect]
     Indication: PSORIATIC ARTHROPATHY
     Dosage: 1 DF, QD
     Route: 048
     Dates: start: 20060117, end: 20060215
  3. SULFASALAZINE [Suspect]
     Indication: PSORIATIC ARTHROPATHY
     Dosage: 500 MG, QD
     Route: 048
     Dates: start: 20060117
  4. SULFASALAZINE [Suspect]
     Dosage: PROGRESSIVE INCREASE TO 2000 MG/DAY
     Route: 048
     Dates: end: 20060215
  5. EUPANTOL [Suspect]
     Dosage: 20 MG/DAY
     Route: 048
     Dates: start: 20060117, end: 20060215

REACTIONS (17)
  - BLOOD ALBUMIN DECREASED [None]
  - DERMATITIS EXFOLIATIVE [None]
  - DRUG RASH WITH EOSINOPHILIA AND SYSTEMIC SYMPTOMS [None]
  - ECZEMA [None]
  - EOSINOPHIL COUNT INCREASED [None]
  - ERYTHEMA [None]
  - ERYTHEMA OF EYELID [None]
  - FACE OEDEMA [None]
  - HEPATITIS [None]
  - LYMPHADENOPATHY [None]
  - MALAISE [None]
  - MONONUCLEOSIS SYNDROME [None]
  - PROTEIN TOTAL DECREASED [None]
  - PURPURA [None]
  - PYREXIA [None]
  - RASH MORBILLIFORM [None]
  - RED BLOOD CELL COUNT INCREASED [None]
